FAERS Safety Report 20502968 (Version 3)
Quarter: 2022Q1

REPORT INFORMATION
  Report Type: Spontaneous
  Country: US (occurrence: US)
  Receive Date: 20220222
  Receipt Date: 20220307
  Transmission Date: 20220423
  Serious: No
  Sender: FDA-Public Use
  Company Number: US-NOVARTISPH-NVSC2022US039617

PATIENT
  Sex: Female

DRUGS (1)
  1. PATADAY [Suspect]
     Active Substance: OLOPATADINE HYDROCHLORIDE
     Indication: Hypersensitivity
     Dosage: UNK UNK, QD (OLOPATADINE HCL 0.2%)
     Route: 065

REACTIONS (4)
  - Corneal laceration [Recovering/Resolving]
  - Product package associated injury [Recovering/Resolving]
  - Expired product administered [Unknown]
  - Product container issue [Unknown]
